FAERS Safety Report 11282925 (Version 3)
Quarter: 2015Q4

REPORT INFORMATION
  Report Type: Spontaneous
  Country: VE (occurrence: VE)
  Receive Date: 20150720
  Receipt Date: 20151015
  Transmission Date: 20160304
  Serious: Yes (Death, Hospitalization)
  Sender: FDA-Public Use
  Company Number: VE-CELGENE-VEN-2015073597

PATIENT
  Sex: Male

DRUGS (3)
  1. GEMCITABINE [Concomitant]
     Active Substance: GEMCITABINE\GEMCITABINE HYDROCHLORIDE
     Indication: ADENOCARCINOMA PANCREAS
     Route: 065
  2. ABRAXANE [Suspect]
     Active Substance: PACLITAXEL
     Route: 041
     Dates: start: 20150310, end: 20150506
  3. ABRAXANE [Suspect]
     Active Substance: PACLITAXEL
     Indication: ADENOCARCINOMA PANCREAS
     Route: 041
     Dates: start: 20150204, end: 20150303

REACTIONS (2)
  - Femur fracture [Fatal]
  - Pancreatic carcinoma [Fatal]

NARRATIVE: CASE EVENT DATE: 20150608
